FAERS Safety Report 24443756 (Version 2)
Quarter: 2024Q4

REPORT INFORMATION
  Report Type: Report from Study
  Country: US (occurrence: US)
  Receive Date: 20241016
  Receipt Date: 20241017
  Transmission Date: 20250114
  Serious: No
  Sender: ROCHE
  Company Number: US-ROCHE-2177712

PATIENT
  Age: 56 Year
  Sex: Female
  Weight: 94.35 kg

DRUGS (21)
  1. RITUXAN [Suspect]
     Active Substance: RITUXIMAB
     Indication: Systemic lupus erythematosus
     Dosage: ON 18/SEP/2018, SHE RECEIVED RITUXIMAB TREATMENT, PRESCRIBED DOSE 1000 MG DAY 1 AND DAY 15, EVERY 6
     Route: 042
  2. RITUXAN [Suspect]
     Active Substance: RITUXIMAB
     Indication: Sjogren^s syndrome
     Route: 042
  3. RITUXAN [Suspect]
     Active Substance: RITUXIMAB
     Indication: Keratitis
     Route: 042
  4. RITUXAN [Suspect]
     Active Substance: RITUXIMAB
     Route: 042
  5. RITUXAN [Suspect]
     Active Substance: RITUXIMAB
     Route: 042
  6. METHOTREXATE [Concomitant]
     Active Substance: METHOTREXATE
     Route: 058
  7. PREDNISONE [Concomitant]
     Active Substance: PREDNISONE
     Route: 048
  8. METOPROLOL TARTRATE [Concomitant]
     Active Substance: METOPROLOL TARTRATE
     Route: 048
  9. PERCOCET [Concomitant]
     Active Substance: ACETAMINOPHEN\OXYCODONE HYDROCHLORIDE
     Dosage: 5-325 MG
     Route: 048
  10. REQUIP [Concomitant]
     Active Substance: ROPINIROLE HYDROCHLORIDE
     Dosage: AT BEDTIME
     Route: 048
  11. CITALOPRAM HYDROBROMIDE [Concomitant]
     Active Substance: CITALOPRAM HYDROBROMIDE
     Route: 048
  12. FOLIC ACID [Concomitant]
     Active Substance: FOLIC ACID
     Route: 048
  13. LISINOPRIL [Concomitant]
     Active Substance: LISINOPRIL
     Route: 048
  14. ACETAMINOPHEN [Concomitant]
     Active Substance: ACETAMINOPHEN
     Dosage: 1-2 TABS
     Route: 048
  15. CLARITIN [Concomitant]
     Active Substance: LORATADINE
     Route: 048
  16. SOLU-MEDROL [Concomitant]
     Active Substance: METHYLPREDNISOLONE SODIUM SUCCINATE
     Route: 042
  17. ONDANSETRON HYDROCHLORIDE [Concomitant]
     Active Substance: ONDANSETRON HYDROCHLORIDE
     Route: 048
  18. GABAPENTIN [Concomitant]
     Active Substance: GABAPENTIN
     Route: 048
  19. IBANDRONIC ACID [Concomitant]
     Active Substance: IBANDRONIC ACID
     Route: 048
  20. ZYRTEC [Concomitant]
     Active Substance: CETIRIZINE HYDROCHLORIDE
     Route: 048
  21. DICLOFENAC [Concomitant]
     Active Substance: DICLOFENAC

REACTIONS (2)
  - Off label use [Unknown]
  - No adverse event [Unknown]
